FAERS Safety Report 6960827-9 (Version None)
Quarter: 2010Q3

REPORT INFORMATION
  Report Type: 
  Country: None (occurrence: None)
  Receive Date: 20100901
  Receipt Date: 20100824
  Transmission Date: 20110219
  Serious: Yes (Hospitalization, Other)
  Sender: FDA-Public Use
  Company Number: US-ROCHE-723557

PATIENT
  Sex: Female
  Weight: 68 kg

DRUGS (8)
  1. PEGINTERFERON ALFA-2A [Suspect]
     Route: 058
     Dates: start: 20080101
  2. PEGINTERFERON ALFA-2A [Suspect]
     Route: 058
     Dates: start: 20100101
  3. RIBAVIRIN [Suspect]
     Route: 048
     Dates: start: 20080101
  4. RIBAVIRIN [Suspect]
     Route: 048
     Dates: start: 20100101
  5. PAXIL [Concomitant]
  6. SPIRONOLACTONE [Concomitant]
     Indication: DIURETIC THERAPY
  7. LASIX [Concomitant]
     Indication: DIURETIC THERAPY
  8. ADVIL LIQUI-GELS [Concomitant]
     Dosage: TAKEN OCCASIONALLY

REACTIONS (9)
  - ABDOMINAL HERNIA [None]
  - AMMONIA INCREASED [None]
  - ANAEMIA [None]
  - DEPRESSION [None]
  - HEADACHE [None]
  - INSOMNIA [None]
  - MYALGIA [None]
  - PYREXIA [None]
  - SEPSIS [None]
